FAERS Safety Report 24261373 (Version 1)
Quarter: 2024Q3

REPORT INFORMATION
  Report Type: Report from Study
  Country: US (occurrence: US)
  Receive Date: 20240829
  Receipt Date: 20240829
  Transmission Date: 20241017
  Serious: Yes (Other)
  Sender: ACADIA PHARMACEUTICALS
  Company Number: US-ACADIA PHARMACEUTICALS INC.-ACA-2024-TRF-004441

PATIENT
  Sex: Female

DRUGS (2)
  1. DAYBUE [Suspect]
     Active Substance: TROFINETIDE
     Indication: Rett syndrome
     Dosage: 5 MILLILITER
  2. DAYBUE [Suspect]
     Active Substance: TROFINETIDE
     Dosage: UNK, TITRATED UP

REACTIONS (3)
  - Condition aggravated [Unknown]
  - Seizure [Unknown]
  - Underdose [Unknown]
